FAERS Safety Report 14634488 (Version 2)
Quarter: 2018Q2

REPORT INFORMATION
  Report Type: Spontaneous
  Country: NO (occurrence: NO)
  Receive Date: 20180314
  Receipt Date: 20180403
  Transmission Date: 20180711
  Serious: Yes (Death, Life-Threatening, Hospitalization)
  Sender: FDA-Public Use
  Company Number: PHHY2018NO042383

PATIENT
  Age: 70 Year
  Sex: Male
  Weight: 42 kg

DRUGS (2)
  1. CARBOPLATIN. [Suspect]
     Active Substance: CARBOPLATIN
     Indication: INFECTION
     Dosage: 350 MG, CYCLIC (350 MG ON DAY 1)
     Route: 042
     Dates: start: 20171031
  2. GEMCITABINE [Suspect]
     Active Substance: GEMCITABINE\GEMCITABINE HYDROCHLORIDE
     Indication: INFECTION
     Dosage: 1400 MG, CYCLIC (1400 MG, CYCLIC EVERY THREE WEEKS, DAY 1 AND DAY 8)
     Route: 042
     Dates: start: 20171031

REACTIONS (1)
  - Septic shock [Fatal]

NARRATIVE: CASE EVENT DATE: 20171115
